FAERS Safety Report 22342243 (Version 1)
Quarter: 2023Q2

REPORT INFORMATION
  Report Type: Spontaneous
  Country: FR (occurrence: FR)
  Receive Date: 20230519
  Receipt Date: 20230519
  Transmission Date: 20230722
  Serious: Yes (Hospitalization)
  Sender: FDA-Public Use
  Company Number: None

PATIENT
  Age: 76 Year
  Sex: Male

DRUGS (8)
  1. KEPPRA [Suspect]
     Active Substance: LEVETIRACETAM
     Indication: Product used for unknown indication
     Dosage: 500 MILLIGRAM, EV 2 DAYS (QOD)
     Route: 048
     Dates: start: 2023
  2. KEPPRA [Suspect]
     Active Substance: LEVETIRACETAM
     Dosage: 750MG IN THE MORNING
     Route: 048
     Dates: start: 20230430
  3. NEBIVOLOL [Suspect]
     Active Substance: NEBIVOLOL
     Indication: Hypertension
     Dosage: 5 MG IN THE MORNING AND 1/2 IN THE EVENING FOR MORE THAN 3 MONTHS
     Route: 048
     Dates: start: 2023
  4. FUROSEMIDE [Suspect]
     Active Substance: FUROSEMIDE
     Indication: Hypertension
     Dosage: } 3 MONTHS
     Route: 048
     Dates: start: 2023, end: 20230501
  5. ARANESP [Suspect]
     Active Substance: DARBEPOETIN ALFA
     Indication: Anaemia
     Dosage: } 6 MONTHS
     Route: 048
     Dates: start: 202212
  6. CALCIUM CARBONATE [Suspect]
     Active Substance: CALCIUM CARBONATE
     Indication: End stage renal disease
     Dosage: 1.54 G, GRANULATED FOR ORAL SUSPENSION IN SACHET-DOSE} 2 MONTS
     Route: 048
     Dates: start: 2023, end: 20230428
  7. SEVELAMER CARBONATE [Suspect]
     Active Substance: SEVELAMER CARBONATE
     Indication: End stage renal disease
     Dosage: } 2 MONTHS
     Route: 048
     Dates: start: 2023, end: 20230428
  8. PANTOPRAZOLE SODIUM [Suspect]
     Active Substance: PANTOPRAZOLE SODIUM
     Indication: Anaemia
     Route: 048
     Dates: start: 20230401, end: 20230502

REACTIONS (2)
  - Rash maculo-papular [Not Recovered/Not Resolved]
  - Eosinophilia [Not Recovered/Not Resolved]

NARRATIVE: CASE EVENT DATE: 20230421
